FAERS Safety Report 17728477 (Version 2)
Quarter: 2020Q2

REPORT INFORMATION
  Report Type: Spontaneous
  Country: US (occurrence: US)
  Receive Date: 20200430
  Receipt Date: 20200603
  Transmission Date: 20200714
  Serious: Yes (Other)
  Sender: FDA-Public Use
  Company Number: US-PFIZER INC-2020166672

PATIENT
  Age: 46 Year
  Sex: Female
  Weight: 53.52 kg

DRUGS (2)
  1. PREMPRO [Suspect]
     Active Substance: ESTROGENS, CONJUGATED\MEDROXYPROGESTERONE ACETATE
     Dosage: HALF OF .3 MG EVERY SINGLE, EVERY OTHER DAY
  2. PREMPRO [Suspect]
     Active Substance: ESTROGENS, CONJUGATED\MEDROXYPROGESTERONE ACETATE
     Indication: POSTMENOPAUSE
     Dosage: UNK UNK, ALTERNATE DAY (0.3MG /1.5MG ONE HALF EVERY OTHER DAY)
     Dates: start: 1993

REACTIONS (7)
  - Intentional product misuse [Not Recovered/Not Resolved]
  - Somnolence [Unknown]
  - Nervousness [Unknown]
  - Drug dependence [Unknown]
  - Product dose omission [Unknown]
  - Headache [Unknown]
  - Sleep disorder [Unknown]

NARRATIVE: CASE EVENT DATE: 1993
